FAERS Safety Report 6497133-5 (Version None)
Quarter: 2009Q4

REPORT INFORMATION
  Report Type: 
  Country: None (occurrence: None)
  Receive Date: 20091215
  Receipt Date: 20090403
  Transmission Date: 20100525
  Serious: No
  Sender: FDA-Public Use
  Company Number: A0777131A

PATIENT
  Age: 77 Year
  Sex: Female

DRUGS (7)
  1. AVODART [Suspect]
     Dates: start: 20060101
  2. DIGOXIN [Concomitant]
  3. VERELAN [Concomitant]
  4. DIAZEPAM [Concomitant]
  5. FLEXERIL [Concomitant]
  6. KAOLIN [Concomitant]
  7. PREDNISONE [Concomitant]

REACTIONS (3)
  - BACK PAIN [None]
  - INTENTIONAL DRUG MISUSE [None]
  - VAGINAL DISCHARGE [None]
